FAERS Safety Report 6404062-1 (Version None)
Quarter: 2009Q4

REPORT INFORMATION
  Report Type: 
  Country: None (occurrence: None)
  Receive Date: 20091016
  Receipt Date: 20090909
  Transmission Date: 20100525
  Serious: No
  Sender: FDA-Public Use
  Company Number: US-ALEXION-A200900733

PATIENT
  Sex: Male

DRUGS (3)
  1. SOLIRIS [Suspect]
     Indication: PAROXYSMAL NOCTURNAL HAEMOGLOBINURIA
     Dosage: UNK
     Route: 042
  2. FLOMAX [Concomitant]
     Dosage: UNK
     Dates: start: 20090701
  3. AVODART [Concomitant]
     Dosage: UNK
     Dates: start: 20090701

REACTIONS (3)
  - DEPRESSED MOOD [None]
  - DYSPHONIA [None]
  - SKIN DISORDER [None]
